FAERS Safety Report 6387436-7 (Version None)
Quarter: 2009Q3

REPORT INFORMATION
  Report Type: 
  Country: None (occurrence: None)
  Receive Date: 20090930
  Receipt Date: 20090917
  Transmission Date: 20100115
  Serious: Yes (Hospitalization)
  Sender: FDA-Public Use
  Company Number: 220010M09USA

PATIENT
  Age: 14 Year
  Sex: Female
  Weight: 23 kg

DRUGS (2)
  1. SAIZEN [Suspect]
     Indication: GROWTH HORMONE DEFICIENCY
     Dosage: 1.6 MG
     Dates: start: 20080405, end: 20090801
  2. LUPRON PEDIATRIC DEPOT (LEUPRORELIN ACETATE) [Concomitant]

REACTIONS (4)
  - GAIT DISTURBANCE [None]
  - HEAD INJURY [None]
  - PAIN IN EXTREMITY [None]
  - ROAD TRAFFIC ACCIDENT [None]
